FAERS Safety Report 4762614-9 (Version None)
Quarter: 2005Q3

REPORT INFORMATION
  Report Type: 
  Country: None (occurrence: None)
  Receive Date: 20050907
  Receipt Date: 20050606
  Transmission Date: 20060218
  Serious: Yes (Other)
  Sender: FDA-Public Use
  Company Number: GB-GLAXOSMITHKLINE-B0383999A

PATIENT
  Sex: Female

DRUGS (3)
  1. SEROXAT [Suspect]
     Route: 065
     Dates: start: 19980101, end: 20050301
  2. DIAZEPAM [Concomitant]
     Route: 065
     Dates: start: 20050301, end: 20050301
  3. LORAZEPAM [Concomitant]
     Route: 065
     Dates: start: 20050301, end: 20050301

REACTIONS (15)
  - AMNESIA [None]
  - ANXIETY [None]
  - BREAST MASS [None]
  - COMPLETED SUICIDE [None]
  - CONVULSION [None]
  - EMOTIONAL DISORDER [None]
  - GALACTORRHOEA [None]
  - HYPOAESTHESIA [None]
  - ILL-DEFINED DISORDER [None]
  - LOSS OF CONSCIOUSNESS [None]
  - MOOD SWINGS [None]
  - PAIN [None]
  - PARAESTHESIA [None]
  - TEARFULNESS [None]
  - VISUAL FIELD DEFECT [None]
